FAERS Safety Report 10619962 (Version 3)
Quarter: 2015Q1

REPORT INFORMATION
  Report Type: Spontaneous
  Country: JP (occurrence: JP)
  Receive Date: 20141202
  Receipt Date: 20150311
  Transmission Date: 20150720
  Serious: Yes (Life-Threatening, Hospitalization, Other)
  Sender: FDA-Public Use
  Company Number: JP-BAYER-2014-172650

PATIENT
  Age: 75 Year
  Sex: Male

DRUGS (4)
  1. BAYASPIRIN [Interacting]
     Active Substance: ASPIRIN
     Indication: AORTIC VALVE REPLACEMENT
  2. WARFARIN [Interacting]
     Active Substance: WARFARIN
     Indication: AORTIC VALVE REPLACEMENT
  3. BAYASPIRIN [Suspect]
     Active Substance: ASPIRIN
     Indication: ANTICOAGULANT THERAPY
     Dosage: 100 MG, DAILY DOSE
     Route: 048
  4. WARFARIN [Interacting]
     Active Substance: WARFARIN
     Indication: ANTICOAGULANT THERAPY
     Dosage: 2.5 MG, DAILY DOSE
     Route: 048

REACTIONS (6)
  - Drug interaction [None]
  - Intra-abdominal haemorrhage [None]
  - Haemorrhagic anaemia [Recovered/Resolved]
  - Cholecystitis [Recovered/Resolved]
  - Gallbladder perforation [Recovered/Resolved]
  - Shock haemorrhagic [Recovered/Resolved]

NARRATIVE: CASE EVENT DATE: 201403
